FAERS Safety Report 19654278 (Version 1)
Quarter: 2021Q3

REPORT INFORMATION
  Report Type: Report from Study
  Country: MX (occurrence: MX)
  Receive Date: 20210803
  Receipt Date: 20210803
  Transmission Date: 20211014
  Serious: Yes (Other)
  Sender: FDA-Public Use
  Company Number: NVSC2021MX134565

PATIENT
  Sex: Female

DRUGS (1)
  1. EXFORGE HCT [Suspect]
     Active Substance: AMLODIPINE BESYLATE\HYDROCHLOROTHIAZIDE\VALSARTAN
     Indication: HYPERTENSION
     Dosage: UNK (5/160/12.5 MG)
     Route: 065

REACTIONS (14)
  - Toothache [Unknown]
  - Throat irritation [Unknown]
  - Visual impairment [Recovering/Resolving]
  - Dysgeusia [Unknown]
  - Vision blurred [Unknown]
  - Eructation [Unknown]
  - Gait disturbance [Unknown]
  - Tinnitus [Unknown]
  - Headache [Unknown]
  - Gastrooesophageal reflux disease [Unknown]
  - Blood glucose increased [Unknown]
  - Peripheral swelling [Unknown]
  - Mastication disorder [Unknown]
  - Blood pressure increased [Unknown]
